FAERS Safety Report 16862366 (Version 1)
Quarter: 2019Q3

REPORT INFORMATION
  Report Type: Spontaneous
  Country: US (occurrence: US)
  Receive Date: 20190927
  Receipt Date: 20190927
  Transmission Date: 20191005
  Serious: No
  Sender: FDA-Public Use
  Company Number: US-GLENMARK PHARMACEUTICALS-2019GMK041782

PATIENT

DRUGS (3)
  1. HUMIRA [Concomitant]
     Active Substance: ADALIMUMAB
     Indication: RHEUMATOID ARTHRITIS
     Dosage: UNK
     Route: 065
  2. POTASSIUM [Concomitant]
     Active Substance: POTASSIUM
     Indication: PRODUCT USED FOR UNKNOWN INDICATION
     Dosage: UNK
     Route: 065
  3. ESTRADIOL VAGINAL INSERTS USP [Suspect]
     Active Substance: ESTRADIOL
     Indication: BLADDER DISORDER
     Dosage: UNK; TWICE A WEEK
     Route: 065

REACTIONS (4)
  - Wrong technique in device usage process [Unknown]
  - Product dose omission [Unknown]
  - No adverse event [Unknown]
  - Product use in unapproved indication [Unknown]

NARRATIVE: CASE EVENT DATE: 20190512
